FAERS Safety Report 10900511 (Version 1)
Quarter: 2015Q1

REPORT INFORMATION
  Report Type: Spontaneous
  Country: US (occurrence: None)
  Receive Date: 20150303
  Receipt Date: 20150303
  Transmission Date: 20150721
  Serious: Yes (Hospitalization)
  Sender: FDA-Public Use
  Company Number: None

PATIENT
  Age: 68 Year
  Sex: Female
  Weight: 47.6 kg

DRUGS (1)
  1. TAXOL [Suspect]
     Active Substance: PACLITAXEL
     Dates: end: 20140620

REACTIONS (10)
  - Deep vein thrombosis [None]
  - Atrial fibrillation [None]
  - Enterococcal bacteraemia [None]
  - Hypotension [None]
  - Ureteric obstruction [None]
  - Electrocardiogram abnormal [None]
  - Sinus tachycardia [None]
  - Blood pressure diastolic decreased [None]
  - Electrocardiogram ST segment abnormal [None]
  - Haemoglobin abnormal [None]

NARRATIVE: CASE EVENT DATE: 20140609
